FAERS Safety Report 8004886-3 (Version None)
Quarter: 2011Q4

REPORT INFORMATION
  Report Type: 
  Country: None (occurrence: None)
  Receive Date: 20111223
  Receipt Date: 20111223
  Transmission Date: 20120403
  Serious: No
  Sender: FDA-Public Use
  Company Number: None

PATIENT
  Age: 67 Year
  Sex: Male
  Weight: 90.718 kg

DRUGS (1)
  1. REGLAN [Suspect]
     Indication: GASTROOESOPHAGEAL REFLUX DISEASE
     Dosage: ONE
     Route: 048
     Dates: start: 20111122, end: 20111126

REACTIONS (4)
  - AGGRESSION [None]
  - TREMOR [None]
  - IRRITABILITY [None]
  - ASTHENIA [None]
